FAERS Safety Report 6444907-2 (Version None)
Quarter: 2009Q4

REPORT INFORMATION
  Report Type: 
  Country: None (occurrence: None)
  Receive Date: 20091117
  Receipt Date: 20091117
  Transmission Date: 20100525
  Serious: No
  Sender: FDA-Public Use
  Company Number: None

PATIENT
  Age: 47 Year
  Sex: Male
  Weight: 96.62 kg

DRUGS (3)
  1. CLOZAPINE [Suspect]
     Dosage: 350MG BID   ; 50MG BID X 24HR
     Dates: start: 20090611
  2. CLOZAPINE [Suspect]
     Dosage: 350MG BID   ; 50MG BID X 24HR
     Dates: start: 20091019
  3. HALDOL [Concomitant]

REACTIONS (1)
  - TREMOR [None]
